FAERS Safety Report 10423905 (Version 1)
Quarter: 2014Q3

REPORT INFORMATION
  Report Type: Spontaneous
  Country: FR (occurrence: FR)
  Receive Date: 20140902
  Receipt Date: 20140902
  Transmission Date: 20150326
  Serious: Yes (Hospitalization)
  Sender: FDA-Public Use
  Company Number: FR-ASTRAZENECA-2014SE64618

PATIENT
  Age: 75 Year
  Sex: Female

DRUGS (13)
  1. AVLOCARDYL [Concomitant]
     Active Substance: PROPRANOLOL HYDROCHLORIDE
  2. PLAVIX [Concomitant]
     Active Substance: CLOPIDOGREL BISULFATE
  3. TAHOR [Concomitant]
     Active Substance: ATORVASTATIN CALCIUM
  4. COVERAM [Concomitant]
     Active Substance: AMLODIPINE\PERINDOPRIL
  5. INEXIUM [Suspect]
     Active Substance: ESOMEPRAZOLE
     Indication: GASTRITIS
     Route: 048
     Dates: end: 20140711
  6. BACLOFENE [Concomitant]
     Active Substance: BACLOFEN
  7. LASILIX [Concomitant]
     Active Substance: FUROSEMIDE
  8. DOLIPRANE [Concomitant]
     Active Substance: ACETAMINOPHEN
  9. SEROPLEX [Concomitant]
     Active Substance: ESCITALOPRAM OXALATE
  10. HUMALOG [Concomitant]
     Active Substance: INSULIN LISPRO
  11. HYPERIUM [Concomitant]
     Active Substance: RILMENIDINE PHOSPHATE
  12. TRAMADOL [Concomitant]
     Active Substance: TRAMADOL
  13. SERETIDE [Concomitant]
     Active Substance: FLUTICASONE FUROATE\SALMETEROL XINAFOATE

REACTIONS (1)
  - Iron deficiency anaemia [Recovered/Resolved]

NARRATIVE: CASE EVENT DATE: 20140611
